FAERS Safety Report 18350298 (Version 1)
Quarter: 2020Q4

REPORT INFORMATION
  Report Type: Spontaneous
  Country: CA (occurrence: CA)
  Receive Date: 20201006
  Receipt Date: 20201006
  Transmission Date: 20210114
  Serious: Yes (Life-Threatening, Other)
  Sender: FDA-Public Use
  Company Number: CA-TEVA-2020-CA-1834871

PATIENT
  Age: 54 Year
  Sex: Male

DRUGS (1)
  1. ACT BUPROPION XL [Suspect]
     Active Substance: BUPROPION

REACTIONS (3)
  - Dizziness [Recovering/Resolving]
  - Suicidal ideation [Recovering/Resolving]
  - Conversion disorder [Recovering/Resolving]
